FAERS Safety Report 17176739 (Version 1)
Quarter: 2019Q4

REPORT INFORMATION
  Report Type: Spontaneous
  Country: DE (occurrence: DE)
  Receive Date: 20191219
  Receipt Date: 20191219
  Transmission Date: 20200122
  Serious: Yes (Hospitalization, Other)
  Sender: FDA-Public Use
  Company Number: DE-US-PROVELL PHARMACEUTICALS LLC-E2B_90073133

PATIENT
  Age: 54 Year
  Sex: Male

DRUGS (1)
  1. EUTHYROX NF [Suspect]
     Active Substance: LEVOTHYROXINE SODIUM
     Indication: PRODUCT USED FOR UNKNOWN INDICATION

REACTIONS (5)
  - Dizziness [Not Recovered/Not Resolved]
  - Fall [Unknown]
  - Syncope [Recovered/Resolved]
  - Gait disturbance [Not Recovered/Not Resolved]
  - Craniofacial fracture [Not Recovered/Not Resolved]

NARRATIVE: CASE EVENT DATE: 20191104
